FAERS Safety Report 6102413-9 (Version None)
Quarter: 2009Q1

REPORT INFORMATION
  Report Type: 
  Country: None (occurrence: None)
  Receive Date: 20090304
  Receipt Date: 20090224
  Transmission Date: 20090719
  Serious: Yes (Death, Other)
  Sender: FDA-Public Use
  Company Number: US-TEVA-186258USA

PATIENT
  Age: 42 Year
  Sex: Male

DRUGS (11)
  1. ACICLOVIR 200 MG CAPSULES [Suspect]
  2. METHYLPREDNISOLONE 4MG TAB [Suspect]
     Indication: GRAFT DYSFUNCTION
  3. AMPHOTERICIN B [Suspect]
     Dosage: 5 MG/KG Q 24 H
  4. VORICONAZOLE [Suspect]
     Dosage: 6 MG/KG Q 12 H X2, THEN 4 MG/KG Q 12 H
  5. CASPOFUNGIN [Suspect]
  6. ANTI-THYMOCYTE GLOBULIN NOS [Suspect]
  7. TACROLIMUS [Suspect]
     Dosage: 3 MG DAILY W/TARGET OF 10-12 MG/ML
  8. MYCOPHENOLATE MOFETIL [Suspect]
  9. LINEZOLID [Suspect]
  10. CEFEPIME [Suspect]
  11. PREDNISONE [Suspect]

REACTIONS (1)
  - CEREBRAL ASPERGILLOSIS [None]
